FAERS Safety Report 7556721-5 (Version None)
Quarter: 2011Q2

REPORT INFORMATION
  Report Type: 
  Country: None (occurrence: None)
  Receive Date: 20110610
  Receipt Date: 20110601
  Transmission Date: 20111010
  Serious: Yes (Hospitalization)
  Sender: FDA-Public Use
  Company Number: 2010SP053010

PATIENT
  Age: 37 Year
  Sex: Female
  Weight: 90.7194 kg

DRUGS (3)
  1. NUVARING [Suspect]
     Indication: CONTRACEPTION
     Dosage: ; VAG
     Route: 067
     Dates: start: 20080212, end: 20080701
  2. LEXAPRO [Concomitant]
  3. NUVARING [Suspect]

REACTIONS (5)
  - NASOPHARYNGITIS [None]
  - HYPOCOAGULABLE STATE [None]
  - INFLUENZA [None]
  - PULMONARY EMBOLISM [None]
  - RASH [None]
